FAERS Safety Report 22789902 (Version 3)
Quarter: 2023Q4

REPORT INFORMATION
  Report Type: Spontaneous
  Country: US (occurrence: US)
  Receive Date: 20230804
  Receipt Date: 20231201
  Transmission Date: 20240110
  Serious: No
  Sender: FDA-Public Use
  Company Number: US-PFIZER INC-PV202300133746

PATIENT
  Age: 56 Year
  Sex: Male

DRUGS (2)
  1. INLYTA [Suspect]
     Active Substance: AXITINIB
     Dosage: 5 MG
  2. INLYTA [Suspect]
     Active Substance: AXITINIB
     Dosage: 10 MG, 2X/DAY (10MG TWICE DAILY)

REACTIONS (3)
  - Constipation [Recovering/Resolving]
  - Abdominal discomfort [Not Recovered/Not Resolved]
  - Decreased appetite [Recovering/Resolving]
